FAERS Safety Report 9674260 (Version 1)
Quarter: 2013Q4

REPORT INFORMATION
  Report Type: Spontaneous
  Country: US (occurrence: US)
  Receive Date: 20131107
  Receipt Date: 20131107
  Transmission Date: 20140711
  Serious: No
  Sender: FDA-Public Use
  Company Number: US-009507513-1311USA001767

PATIENT
  Age: 27 Year
  Sex: Female
  Weight: 92.97 kg

DRUGS (1)
  1. NUVARING [Suspect]
     Indication: CONTRACEPTION
     Dosage: UNK
     Route: 067
     Dates: start: 20131101

REACTIONS (3)
  - Vulvovaginal pain [Unknown]
  - Device expulsion [Unknown]
  - Vulvovaginal discomfort [Unknown]
